FAERS Safety Report 4519627-1 (Version None)
Quarter: 2004Q4

REPORT INFORMATION
  Report Type: 
  Country: None (occurrence: None)
  Receive Date: 20041129
  Receipt Date: 20041110
  Transmission Date: 20050328
  Serious: Yes (Hospitalization)
  Sender: FDA-Public Use
  Company Number: 601592

PATIENT
  Age: 67 Year
  Sex: Female
  Weight: 118 kg

DRUGS (5)
  1. GAMMAGARD S/D [Suspect]
     Indication: CHRONIC INFLAMMATORY DEMYELINATING POLYRADICULONEUROPATHY
     Dosage: 20 GM; INTRAVENOUS
     Route: 042
     Dates: start: 20030101, end: 20041013
  2. BENADRYL ^WARNER-LAMBERT^ [Concomitant]
  3. DECADRON [Concomitant]
  4. IMURAN [Concomitant]
  5. ZAROXOLYN [Concomitant]

REACTIONS (6)
  - BLOOD PRESSURE SYSTOLIC INCREASED [None]
  - CATHETER RELATED COMPLICATION [None]
  - CORONARY ARTERY DISEASE [None]
  - ELECTROCARDIOGRAM ABNORMAL [None]
  - MYOCARDIAL INFARCTION [None]
  - PROCEDURAL COMPLICATION [None]
